FAERS Safety Report 10101698 (Version 1)
Quarter: 2014Q2

REPORT INFORMATION
  Report Type: Spontaneous
  Country: US (occurrence: None)
  Receive Date: 20140423
  Receipt Date: 20140423
  Transmission Date: 20141212
  Serious: Yes (Hospitalization)
  Sender: FDA-Public Use
  Company Number: None

PATIENT
  Age: 60 Year
  Sex: Female
  Weight: 50.9 kg

DRUGS (2)
  1. SOFOSBUVIR [Suspect]
     Indication: CHRONIC HEPATITIS C
     Route: 048
     Dates: start: 20140301
  2. RIBAVIRIN [Suspect]
     Route: 048
     Dates: start: 20140301

REACTIONS (6)
  - Gastrointestinal haemorrhage [None]
  - Fatigue [None]
  - Haemoglobin decreased [None]
  - Dyspnoea [None]
  - Fluid overload [None]
  - Gastrointestinal angiodysplasia [None]
